FAERS Safety Report 4413761-2 (Version None)
Quarter: 2004Q3

REPORT INFORMATION
  Report Type: 
  Country: None (occurrence: None)
  Receive Date: 20040728
  Receipt Date: 20040715
  Transmission Date: 20050211
  Serious: Yes (Hospitalization)
  Sender: FDA-Public Use
  Company Number: 200410473BNE

PATIENT
  Age: 71 Year
  Sex: Male

DRUGS (4)
  1. ASPIRIN [Suspect]
     Indication: CEREBRAL INFARCTION
     Dosage: 75 MG, QD, ORAL
     Route: 048
     Dates: end: 20040624
  2. LANSOPRAZOLE [Concomitant]
  3. GAVISCON [Concomitant]
  4. SENNA [Concomitant]

REACTIONS (6)
  - CONDITION AGGRAVATED [None]
  - DYSPHAGIA [None]
  - GASTRITIS [None]
  - GASTRITIS EROSIVE [None]
  - GASTROOESOPHAGEAL REFLUX DISEASE [None]
  - WEIGHT DECREASED [None]
